FAERS Safety Report 10587652 (Version 1)
Quarter: 2014Q4

REPORT INFORMATION
  Report Type: Report from Study
  Country: CA (occurrence: CA)
  Receive Date: 20141117
  Receipt Date: 20141117
  Transmission Date: 20150529
  Serious: Yes (Other)
  Sender: FDA-Public Use
  Company Number: CA-ABBVIE-14K-028-1308069-00

PATIENT
  Sex: Male

DRUGS (1)
  1. HUMIRA [Suspect]
     Active Substance: ADALIMUMAB
     Indication: CROHN^S DISEASE
     Route: 058
     Dates: start: 20111130

REACTIONS (9)
  - Acarodermatitis [Recovering/Resolving]
  - Nasal discomfort [Recovering/Resolving]
  - Anal stenosis [Unknown]
  - Eczema [Recovering/Resolving]
  - Glossitis [Recovering/Resolving]
  - Haemoglobin decreased [Recovered/Resolved]
  - Serum ferritin decreased [Recovered/Resolved]
  - Eye discharge [Recovering/Resolving]
  - Nasal dryness [Recovering/Resolving]

NARRATIVE: CASE EVENT DATE: 2014
